FAERS Safety Report 4536794-4 (Version None)
Quarter: 2004Q4

REPORT INFORMATION
  Report Type: 
  Country: None (occurrence: None)
  Receive Date: 20041223
  Receipt Date: 20041213
  Transmission Date: 20050328
  Serious: Yes (Hospitalization)
  Sender: FDA-Public Use
  Company Number: DE-BRISTOL-MYERS SQUIBB COMPANY-12800025

PATIENT
  Age: 75 Year
  Sex: Male

DRUGS (2)
  1. CETUXIMAB [Suspect]
     Indication: COLORECTAL CANCER
     Dosage: 01-DEC-2004 (MOST RECENT INFUSION). 19TH INFUSION SO FAR.
     Route: 041
     Dates: start: 20040728, end: 20041201
  2. IRINOTECAN [Suspect]
     Indication: COLORECTAL CANCER
     Dosage: 01-DEC-2004 (MOST RECENT INFUSION). 7TH INFUSION SO FAR.
     Route: 042
     Dates: start: 20040728, end: 20041201

REACTIONS (1)
  - THROMBOSIS [None]
